FAERS Safety Report 6216676-2 (Version None)
Quarter: 2009Q2

REPORT INFORMATION
  Report Type: 
  Country: None (occurrence: None)
  Receive Date: 20090605
  Receipt Date: 20090602
  Transmission Date: 20091009
  Serious: Yes (Other)
  Sender: FDA-Public Use
  Company Number: US-ASTRAZENECA-2009UW03728

PATIENT
  Age: 47 Year
  Sex: Female
  Weight: 97.1 kg

DRUGS (9)
  1. SEROQUEL [Suspect]
     Indication: DEPRESSION
     Route: 048
     Dates: start: 20010101
  2. ABILIFY [Concomitant]
     Dates: start: 20010101, end: 20070101
  3. RISPERDAL [Concomitant]
     Dates: start: 20010101
  4. ZYPREXA [Concomitant]
     Dates: start: 20030101
  5. PROZAC [Concomitant]
  6. LEXAPRO [Concomitant]
     Dates: start: 20060101
  7. BENTROPINE [Concomitant]
     Dates: start: 20080101
  8. CLONAZEPAM [Concomitant]
     Dates: start: 20080101
  9. PARAL [Concomitant]
     Dates: start: 20060101, end: 20070101

REACTIONS (7)
  - BLOOD CHOLESTEROL INCREASED [None]
  - BLOOD TRIGLYCERIDES INCREASED [None]
  - CARDIAC DISORDER [None]
  - GASTROINTESTINAL DISORDER [None]
  - OBESITY [None]
  - SUICIDAL IDEATION [None]
  - TYPE 2 DIABETES MELLITUS [None]
